FAERS Safety Report 9332487 (Version 1)
Quarter: 2013Q2

REPORT INFORMATION
  Report Type: Spontaneous
  Country: GB (occurrence: None)
  Receive Date: 20130603
  Receipt Date: 20130603
  Transmission Date: 20140414
  Serious: Yes (Disabling)
  Sender: FDA-Public Use
  Company Number: SYM-2013-04204

PATIENT
  Age: 43 Year
  Sex: Female

DRUGS (5)
  1. METRONIDAZOLE [Suspect]
     Indication: PRODUCT USED FOR UNKNOWN INDICATION
     Dosage: 1 DOSAGE FORM, 1 IN 1 D
     Dates: start: 20130429
  2. LEVOTHYROXINE (LEVOTHYROXINE) (LEVOTHYROXINE) [Concomitant]
  3. ESTRADOT (ESTRADIOL) (ESTRADIOL) [Concomitant]
  4. HYDROXOCOBALAMIN (HYDROXOCOBALAMIN) (HYDROXOCOBALAMIN) [Concomitant]
  5. HYDROCORTISONE (HYDROCORTISONE) (HYDROCORTISONE) [Concomitant]

REACTIONS (3)
  - Feeling abnormal [None]
  - Acute psychosis [None]
  - Psychotic disorder [None]
